FAERS Safety Report 8479052-8 (Version None)
Quarter: 2012Q2

REPORT INFORMATION
  Report Type: 
  Country: None (occurrence: None)
  Receive Date: 20120629
  Receipt Date: 20100902
  Transmission Date: 20120825
  Serious: Yes (Other)
  Sender: FDA-Public Use
  Company Number: US-ROCHE-GNE306177

PATIENT
  Sex: Female

DRUGS (1)
  1. RANIBIZUMAB [Suspect]
     Indication: AGE-RELATED MACULAR DEGENERATION
     Dosage: 0.05 ML, UNK, LAST DOSE PRIOR TO SAE:30/JULY/2010
     Route: 031

REACTIONS (3)
  - EYELID OEDEMA [None]
  - INTRAOCULAR PRESSURE INCREASED [None]
  - BLINDNESS [None]
